FAERS Safety Report 14848573 (Version 1)
Quarter: 2018Q2

REPORT INFORMATION
  Report Type: Report from Study
  Country: US (occurrence: US)
  Receive Date: 20180504
  Receipt Date: 20180504
  Transmission Date: 20180711
  Serious: Yes (Other)
  Sender: FDA-Public Use
  Company Number: US-BAYER-2018-083349

PATIENT
  Age: 68 Year
  Sex: Male

DRUGS (1)
  1. STIVARGA [Suspect]
     Active Substance: REGORAFENIB
     Indication: HEPATOCELLULAR CARCINOMA
     Dosage: 160 MG, QDX3 WEEKS THEN 1 WEEK OFF

REACTIONS (2)
  - Peripheral swelling [Not Recovered/Not Resolved]
  - Genital erosion [Not Recovered/Not Resolved]

NARRATIVE: CASE EVENT DATE: 20180426
